FAERS Safety Report 22071535 (Version 9)
Quarter: 2023Q2

REPORT INFORMATION
  Report Type: Report from Study
  Country: GB (occurrence: None)
  Receive Date: 20230307
  Receipt Date: 20230629
  Transmission Date: 20230722
  Serious: Yes (Hospitalization)
  Sender: FDA-Public Use
  Company Number: GB-Eisai Medical Research-EC-2023-135497

PATIENT
  Age: 55 Year
  Sex: Female
  Weight: 47.7 kg

DRUGS (16)
  1. LENVATINIB [Suspect]
     Active Substance: LENVATINIB
     Indication: Oesophageal cancer metastatic
     Route: 048
     Dates: start: 20230217, end: 20230330
  2. LENVATINIB [Suspect]
     Active Substance: LENVATINIB
     Route: 048
     Dates: start: 20230331
  3. PEMBROLIZUMAB [Suspect]
     Active Substance: PEMBROLIZUMAB
     Indication: Oesophageal cancer metastatic
     Route: 041
     Dates: start: 20230217, end: 20230217
  4. PEMBROLIZUMAB [Suspect]
     Active Substance: PEMBROLIZUMAB
     Route: 041
     Dates: start: 20230331
  5. CISPLATIN [Suspect]
     Active Substance: CISPLATIN
     Indication: Oesophageal cancer metastatic
     Route: 042
     Dates: start: 20230217, end: 20230217
  6. CISPLATIN [Suspect]
     Active Substance: CISPLATIN
     Route: 042
     Dates: start: 20230310
  7. FLUOROURACIL [Suspect]
     Active Substance: FLUOROURACIL
     Indication: Oesophageal cancer metastatic
     Dosage: ON DAY 1 TO 5
     Route: 042
     Dates: start: 20230217, end: 20230220
  8. FLUOROURACIL [Suspect]
     Active Substance: FLUOROURACIL
     Dosage: ON DAY 1 TO 5
     Route: 042
     Dates: start: 20230310
  9. CYCLIZINE [Concomitant]
     Active Substance: CYCLIZINE
     Dates: start: 20230123
  10. ONDANSETRON [Concomitant]
     Active Substance: ONDANSETRON
     Dates: start: 20230217, end: 20230221
  11. APREPITANT [Concomitant]
     Active Substance: APREPITANT
     Dates: start: 20230217, end: 20230217
  12. MANNITOL [Concomitant]
     Active Substance: MANNITOL
     Dates: start: 20230217, end: 20230217
  13. DEXAMETHASONE [Concomitant]
     Active Substance: DEXAMETHASONE
     Dates: start: 20230217, end: 20230217
  14. POTASSIUM CHLORIDE\SODIUM CHLORIDE [Concomitant]
     Active Substance: POTASSIUM CHLORIDE\SODIUM CHLORIDE
     Dates: start: 20230217, end: 20230217
  15. DOMPERIDONE [Concomitant]
     Active Substance: DOMPERIDONE
     Dates: start: 20230217, end: 20230222
  16. MAGNESIUM SULFATE;POTASSIUM CHLORIDE;SODIUM CHLORIDE [Concomitant]
     Dates: start: 20230217, end: 20230217

REACTIONS (5)
  - Stomatitis [Recovered/Resolved]
  - Nausea [Recovered/Resolved]
  - Gastrointestinal pain [Recovered/Resolved]
  - Musculoskeletal chest pain [Recovered/Resolved]
  - Weight decreased [Recovered/Resolved]

NARRATIVE: CASE EVENT DATE: 20230218
